FAERS Safety Report 11224825 (Version 1)
Quarter: 2015Q2

REPORT INFORMATION
  Report Type: Report from Study
  Country: CA (occurrence: CA)
  Receive Date: 20150629
  Receipt Date: 20150629
  Transmission Date: 20150821
  Serious: Yes (Hospitalization, Other)
  Sender: FDA-Public Use
  Company Number: CA-BAYER-2015-002127

PATIENT
  Age: 70 Year
  Sex: Male

DRUGS (7)
  1. STIVARGA [Suspect]
     Active Substance: REGORAFENIB
     Indication: COLORECTAL CANCER METASTATIC
     Dosage: 120 MG, OD
     Route: 048
     Dates: start: 201502, end: 20150301
  2. STIVARGA [Suspect]
     Active Substance: REGORAFENIB
     Indication: COLORECTAL CANCER METASTATIC
     Dosage: 160 MG, OD
     Route: 048
     Dates: start: 20141231, end: 201502
  3. MAGNESIUM [Concomitant]
     Active Substance: MAGNESIUM
  4. ASPIRIN LOW DOSE [Concomitant]
     Active Substance: ASPIRIN
  5. STIVARGA [Suspect]
     Active Substance: REGORAFENIB
     Indication: COLORECTAL CANCER METASTATIC
     Dosage: 80 MG, OD
     Route: 048
     Dates: start: 20150301, end: 201505
  6. ATIVAN [Concomitant]
     Active Substance: LORAZEPAM
  7. TECTA [Concomitant]
     Active Substance: PANTOPRAZOLE MAGNESIUM

REACTIONS (8)
  - Carcinoembryonic antigen increased [Not Recovered/Not Resolved]
  - Pain management [None]
  - Fatigue [Unknown]
  - Weight decreased [Unknown]
  - Abdominal pain [Recovering/Resolving]
  - Dysphonia [Not Recovered/Not Resolved]
  - Abdominal discomfort [Not Recovered/Not Resolved]
  - Abdominal abscess [None]

NARRATIVE: CASE EVENT DATE: 20141231
